FAERS Safety Report 16309854 (Version 1)
Quarter: 2019Q2

REPORT INFORMATION
  Report Type: Report from Study
  Country: CO (occurrence: CO)
  Receive Date: 20190514
  Receipt Date: 20190514
  Transmission Date: 20190711
  Serious: Yes (Death)
  Sender: FDA-Public Use
  Company Number: PHHY2019CO108178

PATIENT
  Age: 69 Year
  Sex: Female

DRUGS (1)
  1. KISQALI [Suspect]
     Active Substance: RIBOCICLIB
     Indication: BREAST CANCER METASTATIC
     Dosage: 200 MG, TID
     Route: 048
     Dates: start: 20190502

REACTIONS (2)
  - Inappropriate schedule of product administration [Unknown]
  - Death [Fatal]

NARRATIVE: CASE EVENT DATE: 20190502
